FAERS Safety Report 6713734-0 (Version None)
Quarter: 2010Q2

REPORT INFORMATION
  Report Type: 
  Country: None (occurrence: None)
  Receive Date: 20100506
  Receipt Date: 20100430
  Transmission Date: 20101027
  Serious: Yes (Death)
  Sender: FDA-Public Use
  Company Number: GB-CELGENEUS-167-21880-10042692

PATIENT

DRUGS (2)
  1. REVLIMID [Suspect]
     Indication: MANTLE CELL LYMPHOMA
     Route: 048
  2. REVLIMID [Suspect]
     Route: 048

REACTIONS (1)
  - PULMONARY EMBOLISM [None]
